FAERS Safety Report 24263142 (Version 1)
Quarter: 2024Q3

REPORT INFORMATION
  Report Type: Spontaneous
  Country: PA (occurrence: PA)
  Receive Date: 20240829
  Receipt Date: 20240829
  Transmission Date: 20241016
  Serious: Yes (Hospitalization, Other)
  Sender: BAYER
  Company Number: PA-BAYER-2024A124132

PATIENT
  Sex: Female

DRUGS (1)
  1. GADOBUTROL [Suspect]
     Active Substance: GADOBUTROL
     Indication: Magnetic resonance imaging head
     Dosage: 6 ML, ONCE
     Route: 042
     Dates: start: 202408, end: 202408

REACTIONS (2)
  - Syncope [None]
  - Erythema [None]

NARRATIVE: CASE EVENT DATE: 20240814
